FAERS Safety Report 7627798-3 (Version None)
Quarter: 2011Q3

REPORT INFORMATION
  Report Type: 
  Country: None (occurrence: None)
  Receive Date: 20110721
  Receipt Date: 20110715
  Transmission Date: 20111222
  Serious: Yes (Other)
  Sender: FDA-Public Use
  Company Number: US-AMGEN-USASP2011027639

PATIENT
  Age: 53 Year
  Sex: Male

DRUGS (7)
  1. ENBREL [Suspect]
     Indication: PSORIASIS
     Dosage: 50 MG, 2 TIMES/WK
     Dates: start: 20050101
  2. NEXIUM [Concomitant]
  3. NASONEX [Concomitant]
  4. LISINOPRIL AND HYDROCHLOROTHIAZIDE [Concomitant]
  5. SIMVASTATIN [Concomitant]
  6. ENBREL [Suspect]
     Indication: PSORIATIC ARTHROPATHY
  7. AVAPRO [Concomitant]

REACTIONS (18)
  - LEUKOCYTOSIS [None]
  - DRUG HYPERSENSITIVITY [None]
  - NERVE COMPRESSION [None]
  - GUTTATE PSORIASIS [None]
  - ASPARTATE AMINOTRANSFERASE INCREASED [None]
  - JOINT STIFFNESS [None]
  - SINUSITIS [None]
  - ALANINE AMINOTRANSFERASE INCREASED [None]
  - ARTHRALGIA [None]
  - DEHYDRATION [None]
  - ARTHRITIS [None]
  - PSORIASIS [None]
  - BLOOD CREATININE INCREASED [None]
  - THERAPEUTIC RESPONSE DECREASED [None]
  - INJECTION SITE PAIN [None]
  - CARPAL TUNNEL SYNDROME [None]
  - NECK PAIN [None]
  - BLOOD GLUCOSE INCREASED [None]
